FAERS Safety Report 4650265-6 (Version None)
Quarter: 2005Q2

REPORT INFORMATION
  Report Type: 
  Country: None (occurrence: None)
  Receive Date: 20050428
  Receipt Date: 20050415
  Transmission Date: 20051028
  Serious: Yes (Hospitalization, Other)
  Sender: FDA-Public Use
  Company Number: KII-2005-0016079

PATIENT
  Age: 22 Year
  Sex: Male

DRUGS (4)
  1. OXYCONTIN [Suspect]
     Indication: DRUG USE FOR UNKNOWN INDICATION
     Dosage: INHALATION
     Route: 055
  2. METHYLPHENIDATE HCL [Suspect]
     Indication: DRUG USE FOR UNKNOWN INDICATION
     Dosage: INHALATION
     Route: 055
  3. BENZODAZEPINE DERIVATIVES (BENZODAZEPIEN DERIVATIVES) [Concomitant]
     Indication: DRUG USE FOR UNKNOWN INDICATION
     Dosage: ORAL
     Route: 048
  4. COCAINE (COCAINE) [Suspect]
     Indication: DRUG USE FOR UNKNOWN INDICATION
     Dosage: INHALATION
     Route: 055

REACTIONS (25)
  - ACIDOSIS [None]
  - ACTIVATED PARTIAL THROMBOPLASTIN TIME PROLONGED [None]
  - ANION GAP INCREASED [None]
  - BLOOD CALCIUM DECREASED [None]
  - BLOOD GLUCOSE FLUCTUATION [None]
  - BODY TEMPERATURE INCREASED [None]
  - COMA [None]
  - FALL [None]
  - HEPATIC FAILURE [None]
  - HYPOTENSION [None]
  - HYPOXIA [None]
  - INTENTIONAL MISUSE [None]
  - INTERNATIONAL NORMALISED RATIO INCREASED [None]
  - MULTI-ORGAN FAILURE [None]
  - PNEUMONIA ASPIRATION [None]
  - POLYSUBSTANCE ABUSE [None]
  - PROTHROMBIN TIME PROLONGED [None]
  - PUPILLARY REFLEX IMPAIRED [None]
  - RENAL FAILURE [None]
  - RESPIRATORY ARREST [None]
  - RHABDOMYOLYSIS [None]
  - SINUS TACHYCARDIA [None]
  - TROPONIN INCREASED [None]
  - VOMITING [None]
  - WHITE BLOOD CELL COUNT DECREASED [None]
